FAERS Safety Report 19077615 (Version 1)
Quarter: 2021Q1

REPORT INFORMATION
  Report Type: Spontaneous
  Country: JP (occurrence: JP)
  Receive Date: 20210331
  Receipt Date: 20210331
  Transmission Date: 20210420
  Serious: Yes (Other)
  Sender: FDA-Public Use
  Company Number: JP-PFIZER INC-2021343047

PATIENT
  Age: 58 Year
  Sex: Male

DRUGS (5)
  1. BRAFTOVI [Suspect]
     Active Substance: ENCORAFENIB
     Dosage: 225 MG, EVERYDAY
     Route: 048
     Dates: start: 20210119
  2. CETUXIMAB RECOMBINANT [Concomitant]
     Active Substance: CETUXIMAB
     Indication: COLON CANCER
     Dosage: UNK
     Route: 065
     Dates: start: 20201215
  3. MEKTOVI [Suspect]
     Active Substance: BINIMETINIB
     Indication: COLON CANCER
     Dosage: 30 MG, Q12H
     Route: 048
     Dates: start: 20201215, end: 20210119
  4. CETUXIMAB RECOMBINANT [Concomitant]
     Active Substance: CETUXIMAB
     Dosage: UNK
     Route: 065
     Dates: start: 20210119
  5. BRAFTOVI [Suspect]
     Active Substance: ENCORAFENIB
     Indication: COLON CANCER
     Dosage: 225 MG, EVERYDAY
     Route: 048
     Dates: start: 20201215

REACTIONS (9)
  - Carbohydrate antigen 19-9 increased [Recovering/Resolving]
  - Left ventricular dysfunction [Unknown]
  - Paronychia [Unknown]
  - Fatigue [Unknown]
  - Dermatitis acneiform [Unknown]
  - Decreased appetite [Unknown]
  - Pulmonary hypertension [Unknown]
  - Carcinoembryonic antigen increased [Recovering/Resolving]
  - Pericardial effusion [Unknown]

NARRATIVE: CASE EVENT DATE: 202012
